FAERS Safety Report 9755880 (Version 1)
Quarter: 2013Q4

REPORT INFORMATION
  Report Type: Spontaneous
  Country: US (occurrence: US)
  Receive Date: 20131213
  Receipt Date: 20131213
  Transmission Date: 20140711
  Serious: No
  Sender: FDA-Public Use
  Company Number: US-GLAXOSMITHKLINE-A1025525A

PATIENT
  Age: 48 Year
  Sex: Female

DRUGS (2)
  1. NICODERM CQ CLEAR 14MG [Suspect]
     Indication: EX-TOBACCO USER
     Dates: end: 20130603
  2. NICODERM CQ CLEAR 21MG [Suspect]
     Indication: EX-TOBACCO USER

REACTIONS (9)
  - Application site reaction [Recovered/Resolved]
  - Application site pruritus [Recovered/Resolved]
  - Application site irritation [Recovered/Resolved]
  - Drug administration error [Unknown]
  - Pruritus [Recovered/Resolved]
  - Application site exfoliation [Recovered/Resolved]
  - Application site erosion [Recovered/Resolved]
  - Application site haemorrhage [Recovered/Resolved]
  - Application site scab [Recovered/Resolved]
